FAERS Safety Report 24760992 (Version 1)
Quarter: 2024Q4

REPORT INFORMATION
  Report Type: Spontaneous
  Country: RU (occurrence: RU)
  Receive Date: 20241220
  Receipt Date: 20241220
  Transmission Date: 20250114
  Serious: Yes (Other)
  Sender: ROCHE
  Company Number: RU-ROCHE-10000160479

PATIENT
  Age: 47 Year
  Sex: Female

DRUGS (4)
  1. ATEZOLIZUMAB [Suspect]
     Active Substance: ATEZOLIZUMAB
     Indication: Lung adenocarcinoma
     Route: 042
     Dates: start: 202407
  2. BEVACIZUMAB [Suspect]
     Active Substance: BEVACIZUMAB
     Indication: Lung adenocarcinoma
     Route: 042
     Dates: start: 202407
  3. PACLITAXEL [Suspect]
     Active Substance: PACLITAXEL
     Indication: Lung adenocarcinoma
     Route: 065
  4. CARBOPLATIN [Suspect]
     Active Substance: CARBOPLATIN
     Indication: Lung adenocarcinoma
     Route: 065

REACTIONS (3)
  - Polyneuropathy [Unknown]
  - Neutropenia [Unknown]
  - Thrombocytopenia [Unknown]
